FAERS Safety Report 19278921 (Version 2)
Quarter: 2021Q2

REPORT INFORMATION
  Report Type: Report from Study
  Country: CA (occurrence: CA)
  Receive Date: 20210520
  Receipt Date: 20210527
  Transmission Date: 20210717
  Serious: Yes (Hospitalization, Other)
  Sender: FDA-Public Use
  Company Number: CA-FERRINGPH-2021FE03037

PATIENT
  Age: 52 Year
  Sex: Male

DRUGS (3)
  1. DEGARELIX [Suspect]
     Active Substance: DEGARELIX
     Dosage: 240 MG, ONCE/SINGLE
     Route: 065
     Dates: start: 20210406, end: 20210406
  2. DEGARELIX [Suspect]
     Active Substance: DEGARELIX
     Indication: HORMONE-DEPENDENT PROSTATE CANCER
     Dosage: 80 MG, MONTHLY
     Route: 065
     Dates: start: 20210505
  3. KEFLEX [Suspect]
     Active Substance: CEPHALEXIN
     Indication: SKIN REACTION
     Route: 065

REACTIONS (7)
  - Nausea [Not Recovered/Not Resolved]
  - Cellulitis [Not Recovered/Not Resolved]
  - Diarrhoea haemorrhagic [Not Recovered/Not Resolved]
  - Influenza like illness [Not Recovered/Not Resolved]
  - Vomiting [Not Recovered/Not Resolved]
  - Clostridium difficile colitis [Not Recovered/Not Resolved]
  - Wrong technique in product usage process [Unknown]

NARRATIVE: CASE EVENT DATE: 2021
